FAERS Safety Report 24139758 (Version 1)
Quarter: 2024Q3

REPORT INFORMATION
  Report Type: Spontaneous
  Country: FR (occurrence: FR)
  Receive Date: 20240726
  Receipt Date: 20240726
  Transmission Date: 20241017
  Serious: Yes (Hospitalization)
  Sender: TEVA
  Company Number: None

PATIENT
  Age: 40 Year
  Sex: Male
  Weight: 68 kg

DRUGS (2)
  1. EVEROLIMUS [Suspect]
     Active Substance: EVEROLIMUS
     Indication: Liver transplant
     Dosage: 0.75MG 2 TIMES PER DAY, 1FP
     Route: 048
     Dates: start: 20240301
  2. RITUXIMAB [Suspect]
     Active Substance: RITUXIMAB
     Indication: Diffuse large B-cell lymphoma
     Dosage: 375MG.M2 1 TIME PER_WEEK, 1FP
     Route: 042
     Dates: start: 20231014, end: 20240131

REACTIONS (2)
  - Pancytopenia [Recovering/Resolving]
  - Agranulocytosis [Recovered/Resolved]

NARRATIVE: CASE EVENT DATE: 20240315
